FAERS Safety Report 7692519-5 (Version None)
Quarter: 2011Q3

REPORT INFORMATION
  Report Type: 
  Country: None (occurrence: None)
  Receive Date: 20110819
  Receipt Date: 20110811
  Transmission Date: 20111222
  Serious: Yes (Hospitalization, Disabling, Other)
  Sender: FDA-Public Use
  Company Number: US-MERCK-1005USA01296

PATIENT
  Age: 56 Year
  Sex: Female
  Weight: 60 kg

DRUGS (8)
  1. DIGOXIN [Concomitant]
     Indication: ARRHYTHMIA
     Route: 048
     Dates: start: 19920101
  2. FOSAMAX [Suspect]
     Indication: OSTEOPOROSIS
     Route: 048
     Dates: start: 20010109, end: 20051121
  3. FOSAMAX PLUS D [Suspect]
     Indication: OSTEOPOROSIS
     Route: 048
     Dates: start: 20051220, end: 20090326
  4. LANOXIN [Concomitant]
     Indication: ARRHYTHMIA
     Route: 048
     Dates: start: 19920901
  5. ESTRING [Concomitant]
     Indication: HORMONE REPLACEMENT THERAPY
     Route: 048
     Dates: start: 20030101
  6. FOSAMAX [Suspect]
     Route: 048
  7. FLEXERIL [Concomitant]
     Indication: HYPOTONIA
     Route: 048
     Dates: start: 19930101
  8. CLIMARA [Concomitant]
     Indication: HORMONE REPLACEMENT THERAPY
     Route: 048
     Dates: start: 20030101, end: 20060101

REACTIONS (39)
  - BLOOD PARATHYROID HORMONE INCREASED [None]
  - FIBULA FRACTURE [None]
  - BONE FORMATION INCREASED [None]
  - DEVICE FAILURE [None]
  - LIGAMENT SPRAIN [None]
  - CARDIAC MURMUR [None]
  - WEIGHT INCREASED [None]
  - DYSPEPSIA [None]
  - DEEP VEIN THROMBOSIS [None]
  - BREAST DISORDER [None]
  - HIP FRACTURE [None]
  - FALL [None]
  - ADVERSE DRUG REACTION [None]
  - ATROPHY [None]
  - IRRITABLE BOWEL SYNDROME [None]
  - TACHYCARDIA [None]
  - CHOLECYSTITIS ACUTE [None]
  - PARATHYROID TUMOUR BENIGN [None]
  - AORTIC STENOSIS [None]
  - TRICUSPID VALVE INCOMPETENCE [None]
  - TENDONITIS [None]
  - ARTHRALGIA [None]
  - AORTIC VALVE INCOMPETENCE [None]
  - HOT FLUSH [None]
  - FEMUR FRACTURE [None]
  - HYPERPARATHYROIDISM PRIMARY [None]
  - VISUAL ACUITY REDUCED [None]
  - TOOTH DISORDER [None]
  - FEAR [None]
  - ENDOCARDITIS [None]
  - BLOOD PRESSURE INCREASED [None]
  - MUSCLE STRAIN [None]
  - PALPITATIONS [None]
  - MIGRAINE [None]
  - GASTRIC DISORDER [None]
  - VULVOVAGINAL DRYNESS [None]
  - HALLUCINATION [None]
  - TENDON INJURY [None]
  - PLANTAR FASCIITIS [None]
